FAERS Safety Report 10385629 (Version 1)
Quarter: 2014Q3

REPORT INFORMATION
  Report Type: Report from Study
  Country: BR (occurrence: BR)
  Receive Date: 20140814
  Receipt Date: 20140814
  Transmission Date: 20150326
  Serious: Yes (Other)
  Sender: FDA-Public Use
  Company Number: BR-ABBVIE-14K-020-1270379-00

PATIENT
  Age: 59 Year
  Sex: Female
  Weight: 64 kg

DRUGS (4)
  1. HIXIZINE [Concomitant]
     Active Substance: HYDROXYZINE HYDROCHLORIDE
     Indication: SINUSITIS
     Route: 048
     Dates: start: 20140802
  2. KETOPROFEN. [Concomitant]
     Active Substance: KETOPROFEN
     Indication: SINUSITIS
     Route: 048
     Dates: start: 20140802
  3. HUMIRA [Suspect]
     Active Substance: ADALIMUMAB
     Indication: RHEUMATOID ARTHRITIS
     Route: 058
     Dates: start: 20090101
  4. HUMIRA [Suspect]
     Active Substance: ADALIMUMAB
     Route: 058

REACTIONS (6)
  - Foot deformity [Not Recovered/Not Resolved]
  - Red blood cell count abnormal [Unknown]
  - Injection site bruising [Recovered/Resolved]
  - Sinusitis [Not Recovered/Not Resolved]
  - Facial pain [Not Recovered/Not Resolved]
  - Arthropathy [Not Recovered/Not Resolved]

NARRATIVE: CASE EVENT DATE: 20140731
